FAERS Safety Report 16446821 (Version 1)
Quarter: 2019Q2

REPORT INFORMATION
  Report Type: Spontaneous
  Country: CA (occurrence: CA)
  Receive Date: 20190618
  Receipt Date: 20190618
  Transmission Date: 20190711
  Serious: Yes (Other)
  Sender: FDA-Public Use
  Company Number: CA-FERRINGPH-2019FE03528

PATIENT

DRUGS (2)
  1. ENDOMETRIN [Suspect]
     Active Substance: PROGESTERONE
     Dosage: 100 MG, 3 TIMES DAILY
     Route: 067
  2. ENDOMETRIN [Suspect]
     Active Substance: PROGESTERONE
     Indication: LUTEAL PHASE DEFICIENCY
     Dosage: 100 MG, 3 TIMES DAILY
     Route: 067

REACTIONS (2)
  - Withdrawal syndrome [Recovered/Resolved]
  - Anaphylactic reaction [Recovered/Resolved]
